FAERS Safety Report 10151805 (Version 3)
Quarter: 2014Q3

REPORT INFORMATION
  Report Type: Report from Study
  Country: CN (occurrence: CN)
  Receive Date: 20140505
  Receipt Date: 20140716
  Transmission Date: 20150326
  Serious: Yes (Hospitalization)
  Sender: FDA-Public Use
  Company Number: CN-BRISTOL-MYERS SQUIBB COMPANY-19974211

PATIENT
  Age: 61 Year
  Sex: Male
  Weight: 80 kg

DRUGS (7)
  1. LOSARTAN POTASSIUM + HCTZ [Concomitant]
     Active Substance: HYDROCHLOROTHIAZIDE\LOSARTAN
     Route: 048
     Dates: start: 2010
  2. ALPROSTADIL. [Concomitant]
     Active Substance: ALPROSTADIL
     Dosage: INJECTION
     Route: 042
     Dates: start: 20140102, end: 20140115
  3. METFORMIN [Concomitant]
     Active Substance: METFORMIN HYDROCHLORIDE
     Route: 048
     Dates: start: 20140102, end: 20140107
  4. LEVAMLODIPINE BESYLATE [Concomitant]
     Dosage: TABS
     Route: 048
     Dates: start: 1996
  5. NOVORAPID [Concomitant]
     Active Substance: INSULIN ASPART
     Dosage: NOVORAPID N : 1DF=6 IU/DAY,NOVORAPID R: 1DF=8IU TID
     Route: 055
     Dates: start: 20140102, end: 20140108
  6. SAXAGLIPTIN [Suspect]
     Active Substance: SAXAGLIPTIN
     Indication: TYPE 2 DIABETES MELLITUS
     Dosage: TABS
     Route: 048
     Dates: start: 20130808, end: 20140102
  7. ASPIRIN. [Concomitant]
     Active Substance: ASPIRIN
     Dosage: ENTERIC-COATED TABS
     Route: 048
     Dates: start: 2012, end: 20140102

REACTIONS (3)
  - Arrhythmia [Recovered/Resolved]
  - Blood glucose fluctuation [Unknown]
  - Palpitations [Recovered/Resolved]

NARRATIVE: CASE EVENT DATE: 20140102
